FAERS Safety Report 17939818 (Version 2)
Quarter: 2020Q3

REPORT INFORMATION
  Report Type: Spontaneous
  Country: BR (occurrence: BR)
  Receive Date: 20200625
  Receipt Date: 20200722
  Transmission Date: 20201103
  Serious: Yes (Other)
  Sender: FDA-Public Use
  Company Number: BR-AMGEN-BRASP2020101216

PATIENT
  Age: 58 Year
  Sex: Male

DRUGS (1)
  1. ENBREL [Suspect]
     Active Substance: ETANERCEPT
     Indication: PRODUCT USED FOR UNKNOWN INDICATION
     Dosage: UNK
     Route: 065
     Dates: start: 2016

REACTIONS (13)
  - Influenza [Recovering/Resolving]
  - Nail infection [Unknown]
  - Localised infection [Unknown]
  - Uveitis [Unknown]
  - Ageusia [Recovering/Resolving]
  - Paronychia [Unknown]
  - Syncope [Unknown]
  - Hepatotoxicity [Recovering/Resolving]
  - Anosmia [Recovering/Resolving]
  - Cough [Recovering/Resolving]
  - Prostatic disorder [Unknown]
  - Groin pain [Unknown]
  - Ankylosing spondylitis [Unknown]
